FAERS Safety Report 4443351-7 (Version None)
Quarter: 2004Q3

REPORT INFORMATION
  Report Type: 
  Country: None (occurrence: None)
  Receive Date: 20040908
  Receipt Date: 20040826
  Transmission Date: 20050211
  Serious: Yes (Hospitalization)
  Sender: FDA-Public Use
  Company Number: PHBS2004LB11524

PATIENT
  Age: 39 Year
  Sex: Female

DRUGS (4)
  1. TEGRETOL [Suspect]
     Indication: GRAND MAL CONVULSION
     Route: 065
  2. EPANUTIN [Suspect]
  3. GARDENAL [Suspect]
  4. RIVOTRIL [Suspect]

REACTIONS (5)
  - BLOOD CALCIUM DECREASED [None]
  - GRAND MAL CONVULSION [None]
  - TETANY [None]
  - VITAMIN D DECREASED [None]
  - VITAMIN D DEFICIENCY [None]
